FAERS Safety Report 8593934-8 (Version None)
Quarter: 2012Q3

REPORT INFORMATION
  Report Type: 
  Country: None (occurrence: None)
  Receive Date: 20120814
  Receipt Date: 20120809
  Transmission Date: 20120928
  Serious: Yes (Other)
  Sender: FDA-Public Use
  Company Number: JP-VERTEX PHARMACEUTICALS INC.-AE-2012-012033

PATIENT
  Age: 37 Year
  Sex: Female

DRUGS (4)
  1. TELAVIC (TELAPREVIR) [Suspect]
     Indication: HEPATITIS C
     Route: 048
     Dates: start: 20120620
  2. PEGINTERFERON ALFA-2B [Concomitant]
     Indication: HEPATITIS C
     Route: 058
     Dates: start: 20120620
  3. RIBAVIRIN [Concomitant]
     Indication: HEPATITIS C
     Route: 048
     Dates: start: 20120620, end: 20120704
  4. RIBAVIRIN [Concomitant]
     Route: 048
     Dates: start: 20120704

REACTIONS (5)
  - DECREASED APPETITE [None]
  - DYSGEUSIA [None]
  - BLOOD CREATINE INCREASED [None]
  - HAEMOGLOBIN DECREASED [None]
  - BLOOD URIC ACID INCREASED [None]
